FAERS Safety Report 17334782 (Version 1)
Quarter: 2020Q1

REPORT INFORMATION
  Report Type: Report from Study
  Country: CA (occurrence: CA)
  Receive Date: 20200128
  Receipt Date: 20200128
  Transmission Date: 20200409
  Serious: Yes (Other)
  Sender: FDA-Public Use
  Company Number: CA-JNJFOC-20200119180

PATIENT
  Age: 5 Year
  Sex: Female
  Weight: 24.1 kg

DRUGS (2)
  1. REMICADE [Suspect]
     Active Substance: INFLIXIMAB
     Indication: COLITIS ULCERATIVE
     Route: 042
     Dates: start: 20180929
  2. AZATHIOPRINE. [Concomitant]
     Active Substance: AZATHIOPRINE
     Indication: COLITIS ULCERATIVE
     Route: 048

REACTIONS (5)
  - Oral herpes [Unknown]
  - Nasopharyngitis [Unknown]
  - Headache [Unknown]
  - Colitis ulcerative [Unknown]
  - Pain in extremity [Unknown]

NARRATIVE: CASE EVENT DATE: 201809
